FAERS Safety Report 21437900 (Version 1)
Quarter: 2022Q4

REPORT INFORMATION
  Report Type: Spontaneous
  Country: GB (occurrence: GB)
  Receive Date: 20221011
  Receipt Date: 20221011
  Transmission Date: 20230113
  Serious: Yes (Other)
  Sender: FDA-Public Use
  Company Number: None

PATIENT
  Age: 78 Year
  Sex: Female

DRUGS (7)
  1. AZTREONAM LYSINE [Suspect]
     Active Substance: AZTREONAM LYSINE
     Indication: Product used for unknown indication
     Route: 065
  2. BISOPROLOL [Concomitant]
     Active Substance: BISOPROLOL
     Dosage: 2.5 MG, BID
  3. DIGOXIN [Concomitant]
     Active Substance: DIGOXIN
  4. EDOXABAN [Concomitant]
     Active Substance: EDOXABAN
  5. EPILIM [Concomitant]
     Active Substance: VALPROATE SODIUM
  6. FLUTICASONE [Concomitant]
     Active Substance: FLUTICASONE
  7. ACETAMINOPHEN [Concomitant]
     Active Substance: ACETAMINOPHEN

REACTIONS (1)
  - Seizure [Unknown]
